FAERS Safety Report 25023362 (Version 3)
Quarter: 2025Q4

REPORT INFORMATION
  Report Type: Report from Study
  Country: US (occurrence: US)
  Receive Date: 20250228
  Receipt Date: 20251013
  Transmission Date: 20260118
  Serious: Yes (Hospitalization, Other)
  Sender: ABBVIE
  Company Number: US-ABBVIE-6148588

PATIENT
  Age: 57 Year
  Sex: Male

DRUGS (3)
  1. SKYRIZI [Suspect]
     Active Substance: RISANKIZUMAB-RZAA
     Indication: Psoriasis
     Dosage: STRENGTH: 150MG/ML, DRUG END DATE-2024
     Route: 058
     Dates: start: 202404
  2. SKYRIZI [Suspect]
     Active Substance: RISANKIZUMAB-RZAA
     Dosage: STRENGTH: 150MG/ML
     Route: 058
     Dates: start: 202410
  3. SKYRIZI [Suspect]
     Active Substance: RISANKIZUMAB-RZAA
     Route: 058
     Dates: start: 20250523

REACTIONS (17)
  - Peripheral swelling [Not Recovered/Not Resolved]
  - Sepsis [Unknown]
  - Arthritis [Unknown]
  - Walking aid user [Unknown]
  - Psoriasis [Recovered/Resolved]
  - Musculoskeletal disorder [Unknown]
  - Wheelchair user [Unknown]
  - Oedema peripheral [Unknown]
  - Peroneal nerve palsy [Unknown]
  - Psoriasis [Recovered/Resolved]
  - Atrial fibrillation [Not Recovered/Not Resolved]
  - Joint effusion [Not Recovered/Not Resolved]
  - Depression [Not Recovered/Not Resolved]
  - Cataract [Not Recovered/Not Resolved]
  - Calcinosis [Not Recovered/Not Resolved]
  - Psoriasis [Not Recovered/Not Resolved]
  - Arthritis [Not Recovered/Not Resolved]

NARRATIVE: CASE EVENT DATE: 20240101
